FAERS Safety Report 25543435 (Version 1)
Quarter: 2025Q3

REPORT INFORMATION
  Report Type: Spontaneous
  Country: US (occurrence: None)
  Receive Date: 20250710
  Receipt Date: 20250710
  Transmission Date: 20251020
  Serious: Yes (Death)
  Sender: FDA-CTU
  Company Number: None

PATIENT
  Age: 76 Year
  Sex: Male

DRUGS (1)
  1. ACTEMRA [Suspect]
     Active Substance: TOCILIZUMAB
     Indication: Giant cell arteritis
     Dosage: OTHER QUANTITY : 162MG/0.9ML;?FREQUENCY : WEEKLY;?
     Route: 058
     Dates: start: 20250401, end: 20250703

REACTIONS (1)
  - Death [None]

NARRATIVE: CASE EVENT DATE: 20250703
